FAERS Safety Report 10168856 (Version 1)
Quarter: 2014Q2

REPORT INFORMATION
  Report Type: Spontaneous
  Country: GB (occurrence: None)
  Receive Date: 20140509
  Receipt Date: 20140509
  Transmission Date: 20141212
  Serious: Yes (Other)
  Sender: FDA-Public Use
  Company Number: AUR-APL-2014-05315

PATIENT
  Age: 47 Year
  Sex: Female
  Weight: 63.5 kg

DRUGS (7)
  1. SIMVASTATIN (SIMVASTATIN) [Suspect]
     Indication: GLOMERULONEPHRITIS
     Route: 048
  2. AMITRIPTYLINE [Concomitant]
  3. FUROSEMIDE [Concomitant]
  4. LORATADINE [Concomitant]
  5. OMEPRAZOLE [Concomitant]
  6. PARACETAMOL [Concomitant]
  7. TRAMADOL [Concomitant]

REACTIONS (6)
  - Pain [None]
  - Burning sensation [None]
  - Paralysis [None]
  - Anxiety [None]
  - Malaise [None]
  - Pain in extremity [None]
